FAERS Safety Report 19789059 (Version 3)
Quarter: 2021Q4

REPORT INFORMATION
  Report Type: Report from Study
  Country: US (occurrence: US)
  Receive Date: 20210905
  Receipt Date: 20211029
  Transmission Date: 20220303
  Serious: Yes (Hospitalization)
  Sender: FDA-Public Use
  Company Number: US-TEVA-2021-US-1948471

PATIENT
  Age: 18 Year
  Sex: Male
  Weight: 64 kg

DRUGS (7)
  1. METHOTREXATE [Suspect]
     Active Substance: METHOTREXATE
     Indication: Acute lymphocytic leukaemia
     Route: 048
     Dates: start: 20200902, end: 20211006
  2. METHOTREXATE [Suspect]
     Active Substance: METHOTREXATE
     Route: 042
     Dates: start: 20210712
  3. MERCAPTOPURINE [Suspect]
     Active Substance: MERCAPTOPURINE
     Indication: Acute lymphocytic leukaemia
     Dosage: 25 MG MON-THURS; 50 MG(FRI-SUN), QHS
     Route: 048
     Dates: start: 20200131, end: 20211009
  4. PREDNISONE [Suspect]
     Active Substance: PREDNISONE
     Indication: Acute lymphocytic leukaemia
     Dosage: 70 MILLIGRAM DAILY; 5D INTERMITTENT
     Route: 048
     Dates: start: 20200826, end: 20210927
  5. VINCRISTINE [Suspect]
     Active Substance: VINCRISTINE
     Indication: Acute lymphocytic leukaemia
     Route: 042
     Dates: start: 20191204, end: 20210922
  6. RUXOLITINIB [Suspect]
     Active Substance: RUXOLITINIB
     Indication: Acute lymphocytic leukaemia
     Dosage: 14D/ON 14D/OFF
     Route: 048
     Dates: start: 20191020, end: 20211006
  7. METHOTREXATE [Suspect]
     Active Substance: METHOTREXATE
     Indication: Acute lymphocytic leukaemia
     Dosage: ON D1^S;
     Route: 037
     Dates: start: 20191120, end: 20210728

REACTIONS (4)
  - Febrile neutropenia [Unknown]
  - Anaemia [Recovered/Resolved]
  - Enterovirus infection [Recovered/Resolved]
  - Rhinovirus infection [Recovered/Resolved]

NARRATIVE: CASE EVENT DATE: 20210817
